FAERS Safety Report 18452026 (Version 1)
Quarter: 2020Q4

REPORT INFORMATION
  Report Type: Spontaneous
  Country: US (occurrence: US)
  Receive Date: 20201031
  Receipt Date: 20201031
  Transmission Date: 20210114
  Serious: No
  Sender: FDA-Public Use
  Company Number: None

PATIENT
  Age: 78 Year
  Sex: Female
  Weight: 131.4 kg

DRUGS (16)
  1. PROTONIX [Concomitant]
     Active Substance: PANTOPRAZOLE SODIUM
  2. PROAIR HFA [Concomitant]
     Active Substance: ALBUTEROL SULFATE
  3. ZOCOR [Concomitant]
     Active Substance: SIMVASTATIN
  4. EVEROLIMUS. [Suspect]
     Active Substance: EVEROLIMUS
     Indication: BREAST CANCER FEMALE
     Route: 048
     Dates: start: 20200821, end: 20201031
  5. VITAMIN B-12 ER [Concomitant]
  6. TOPROL XL 25MG [Concomitant]
  7. NORVASC [Concomitant]
     Active Substance: AMLODIPINE BESYLATE
  8. LASIX [Concomitant]
     Active Substance: FUROSEMIDE
  9. LEVEMIR FLEXTOUCH 100UNIT/ML [Concomitant]
  10. FEMARA [Concomitant]
     Active Substance: LETROZOLE
  11. JANUVIA [Concomitant]
     Active Substance: SITAGLIPTIN PHOSPHATE
  12. VITAMIN C [Concomitant]
     Active Substance: ASCORBIC ACID
  13. OSCAL 500/200 D3 [Concomitant]
  14. ASPIRIN 81MG [Concomitant]
     Active Substance: ASPIRIN
  15. COLACE [Concomitant]
     Active Substance: DOCUSATE SODIUM
  16. NOVOLOG FLEXPEN 100UNIT/ML [Concomitant]

REACTIONS (3)
  - Nausea [None]
  - Vomiting [None]
  - Abdominal pain upper [None]

NARRATIVE: CASE EVENT DATE: 20201031
